FAERS Safety Report 9054515 (Version 1)
Quarter: 2013Q1

REPORT INFORMATION
  Report Type: Spontaneous
  Country: US (occurrence: US)
  Receive Date: 20130208
  Receipt Date: 20130208
  Transmission Date: 20140127
  Serious: No
  Sender: FDA-Public Use
  Company Number: US-GLAXOSMITHKLINE-A1003393A

PATIENT
  Age: 76 Year
  Sex: Female

DRUGS (11)
  1. PAXIL [Suspect]
  2. TARCEVA [Suspect]
     Indication: LUNG CARCINOMA CELL TYPE UNSPECIFIED STAGE 0
     Dosage: 150MG PER DAY
     Route: 048
     Dates: start: 20120503
  3. XANAX [Concomitant]
  4. ARMOUR THYROID [Concomitant]
  5. OMEPRAZOLE [Concomitant]
  6. PROCHLORPERAZINE [Concomitant]
  7. METHOCARBAMOL [Concomitant]
  8. PREMARIN [Concomitant]
  9. AMITRIPTYLINE [Concomitant]
  10. FOLIC ACID [Concomitant]
  11. VOLTAREN [Concomitant]

REACTIONS (2)
  - Fatigue [Unknown]
  - Constipation [Unknown]
